FAERS Safety Report 16272416 (Version 2)
Quarter: 2019Q2

REPORT INFORMATION
  Report Type: Spontaneous
  Country: US (occurrence: US)
  Receive Date: 20190503
  Receipt Date: 20190514
  Transmission Date: 20190711
  Serious: Yes (Other)
  Sender: FDA-Public Use
  Company Number: US-ASTRAZENECA-2018SF65605

PATIENT
  Sex: Female
  Weight: 67.6 kg

DRUGS (9)
  1. CETRIZINE [Concomitant]
     Active Substance: CETIRIZINE HYDROCHLORIDE
  2. PREVACID [Suspect]
     Active Substance: LANSOPRAZOLE
     Route: 065
  3. PREDNISONE. [Concomitant]
     Active Substance: PREDNISONE
  4. LISINOPRIL. [Concomitant]
     Active Substance: LISINOPRIL
  5. NEXIUM [Suspect]
     Active Substance: ESOMEPRAZOLE MAGNESIUM
     Dosage: 40.0MG UNKNOWN
     Route: 048
     Dates: start: 20110606, end: 20110916
  6. PROTONIX [Suspect]
     Active Substance: PANTOPRAZOLE SODIUM
     Route: 065
  7. OMEPRAZOLE. [Suspect]
     Active Substance: OMEPRAZOLE
     Indication: GASTROOESOPHAGEAL REFLUX DISEASE
     Route: 048
     Dates: start: 2010, end: 2011
  8. NEXIUM [Suspect]
     Active Substance: ESOMEPRAZOLE MAGNESIUM
     Dosage: UNKNOWN
     Route: 048
     Dates: start: 2007, end: 2010
  9. AMLODIPINE [Concomitant]
     Active Substance: AMLODIPINE BESYLATE

REACTIONS (4)
  - Renal injury [Unknown]
  - Chronic kidney disease [Unknown]
  - Renal failure [Unknown]
  - Rebound acid hypersecretion [Unknown]
